FAERS Safety Report 6721774-0 (Version None)
Quarter: 2010Q2

REPORT INFORMATION
  Report Type: 
  Country: None (occurrence: None)
  Receive Date: 20100512
  Receipt Date: 20100510
  Transmission Date: 20101027
  Serious: Yes (Hospitalization, Disabling, Other)
  Sender: FDA-Public Use
  Company Number: GB-ROXANE LABORATORIES, INC.-2010-RO-00410RO

PATIENT
  Age: 73 Year
  Sex: Male

DRUGS (13)
  1. MORPHINE [Suspect]
     Indication: ARTHRALGIA
     Route: 048
  2. DIAMORPHINE [Suspect]
     Indication: ARTHRALGIA
     Route: 058
  3. DIAMORPHINE [Suspect]
     Route: 058
  4. DIAMORPHINE [Suspect]
     Route: 058
  5. DIAMORPHINE [Suspect]
     Route: 058
  6. CYCLIZINE [Suspect]
     Indication: ANTIEMETIC SUPPORTIVE CARE
     Route: 058
  7. HALOPERIDOL [Suspect]
     Indication: ANTIEMETIC SUPPORTIVE CARE
  8. LEVOMEPROMAZINE [Suspect]
     Indication: ANTIEMETIC SUPPORTIVE CARE
  9. LEVOMEPROMAZINE [Suspect]
  10. LEVOMEPROMAZINE [Suspect]
  11. OXYCODONE [Concomitant]
     Indication: PAIN
  12. MORPHINE [Concomitant]
  13. NSAID [Concomitant]

REACTIONS (21)
  - AGITATION [None]
  - BEDRIDDEN [None]
  - CACHEXIA [None]
  - CIRCADIAN RHYTHM SLEEP DISORDER [None]
  - CONFUSIONAL STATE [None]
  - CONSCIOUSNESS FLUCTUATING [None]
  - DECREASED APPETITE [None]
  - DELIRIUM [None]
  - DIARRHOEA [None]
  - DRUG INEFFECTIVE [None]
  - DRUG TOXICITY [None]
  - HALLUCINATION [None]
  - LIVER FUNCTION TEST ABNORMAL [None]
  - MALAISE [None]
  - METASTASES TO LIVER [None]
  - MIOSIS [None]
  - MYOCLONUS [None]
  - NAUSEA [None]
  - PRURITUS [None]
  - VOMITING [None]
  - WEIGHT DECREASED [None]
